FAERS Safety Report 26175296 (Version 1)
Quarter: 2025Q4

REPORT INFORMATION
  Report Type: Spontaneous
  Country: US (occurrence: US)
  Receive Date: 20251218
  Receipt Date: 20251218
  Transmission Date: 20260117
  Serious: Yes (Hospitalization)
  Sender: DR REDDYS
  Company Number: None

PATIENT
  Age: 40 Year
  Sex: Female

DRUGS (1)
  1. OLANZAPINE [Suspect]
     Active Substance: OLANZAPINE
     Indication: Product used for unknown indication
     Dosage: AT BEDTIME, INITIATED FOUR MONTHS PRIOR
     Route: 048

REACTIONS (3)
  - Colitis ischaemic [Recovered/Resolved]
  - Gastrointestinal necrosis [Recovered/Resolved]
  - Large intestinal ulcer [Recovered/Resolved]
